FAERS Safety Report 16756051 (Version 1)
Quarter: 2019Q3

REPORT INFORMATION
  Report Type: Report from Study
  Country: US (occurrence: US)
  Receive Date: 20190829
  Receipt Date: 20190829
  Transmission Date: 20191005
  Serious: Yes (Death)
  Sender: FDA-Public Use
  Company Number: US-EXELIXIS-CABO-19023378

PATIENT
  Age: 73 Year
  Sex: Male
  Weight: 72 kg

DRUGS (1)
  1. CABOMETYX [Suspect]
     Active Substance: CABOZANTINIB S-MALATE
     Indication: HEPATIC CANCER
     Dosage: 40 MG, QD
     Dates: start: 20190402

REACTIONS (1)
  - Death [Fatal]

NARRATIVE: CASE EVENT DATE: 20190812
